FAERS Safety Report 25570153 (Version 1)
Quarter: 2025Q3

REPORT INFORMATION
  Report Type: Spontaneous
  Country: US (occurrence: US)
  Receive Date: 20250717
  Receipt Date: 20250717
  Transmission Date: 20251020
  Serious: No
  Sender: ABBVIE
  Company Number: US-ABBVIE-6371991

PATIENT
  Sex: Male

DRUGS (1)
  1. CARAFATE [Suspect]
     Active Substance: SUCRALFATE
     Indication: Ulcer
     Route: 048
     Dates: start: 2019

REACTIONS (2)
  - Abdominal discomfort [Unknown]
  - Inflammation [Unknown]
